FAERS Safety Report 20368950 (Version 1)
Quarter: 2022Q1

REPORT INFORMATION
  Report Type: Spontaneous
  Country: US (occurrence: US)
  Receive Date: 20220124
  Receipt Date: 20220124
  Transmission Date: 20220423
  Serious: Yes (Other)
  Sender: FDA-Public Use
  Company Number: US-BAYER-2022A011038

PATIENT
  Sex: Female

DRUGS (3)
  1. ADEMPAS [Suspect]
     Active Substance: RIOCIGUAT
     Dosage: UNK
  2. AMBRISENTAN [Suspect]
     Active Substance: AMBRISENTAN
     Dosage: 5 MG, QD
     Route: 048
     Dates: start: 20200608
  3. REMODULIN [Concomitant]
     Active Substance: TREPROSTINIL
     Dosage: UNK

REACTIONS (2)
  - Haemoptysis [Not Recovered/Not Resolved]
  - Epistaxis [Not Recovered/Not Resolved]
